FAERS Safety Report 19572730 (Version 2)
Quarter: 2021Q3

REPORT INFORMATION
  Report Type: Report from Study
  Country: AT (occurrence: AT)
  Receive Date: 20210716
  Receipt Date: 20210726
  Transmission Date: 20211014
  Serious: Yes (Hospitalization)
  Sender: FDA-Public Use
  Company Number: AT-PFIZER INC-2021793732

PATIENT

DRUGS (15)
  1. ACEMIN [LISINOPRIL] [Concomitant]
     Active Substance: LISINOPRIL
     Dosage: UNK
  2. FENAKUT [Concomitant]
     Dates: start: 20180810, end: 20181019
  3. AMLODIPINE [Concomitant]
     Active Substance: AMLODIPINE BESYLATE
     Dosage: UNK
  4. DEXABENE [Concomitant]
     Dosage: UNK
     Dates: start: 20180810, end: 20181019
  5. VITAMINS WITH MINERALS [Concomitant]
     Active Substance: MINERALS\VITAMINS
     Dosage: UNK
     Dates: start: 20181029
  6. TRASTUZUMAB. [Suspect]
     Active Substance: TRASTUZUMAB
     Indication: BREAST CANCER METASTATIC
     Dosage: 464 MG, EVERY 3 WEEKS,MOST RECENT DOSE PRIOR TO THE EVENT: 21SEP2018
     Route: 042
     Dates: start: 20180810, end: 20180810
  7. XGEVA [Concomitant]
     Active Substance: DENOSUMAB
     Dosage: UNK
     Dates: start: 20181012
  8. PACLITAXEL. [Suspect]
     Active Substance: PACLITAXEL
     Indication: BREAST CANCER METASTATIC
     Dosage: 129.61 MG, EVERY WEEK
     Route: 042
     Dates: start: 20180810, end: 20180824
  9. KYTRIL [Concomitant]
     Active Substance: GRANISETRON HYDROCHLORIDE
     Dosage: UNK
     Dates: start: 20180810, end: 20181019
  10. LETROZOLE. [Suspect]
     Active Substance: LETROZOLE
     Indication: BREAST CANCER METASTATIC
     Dosage: 2.5 MG, OD ? ONCE DAILY
     Route: 048
     Dates: start: 20181029
  11. PERTUZUMAB. [Suspect]
     Active Substance: PERTUZUMAB
     Indication: BREAST CANCER METASTATIC
     Dosage: 840 MG, EVERY 3 WEEKS (MOST RECENT DOSE PRIOR TO THE EVENT: 21SEP2018)
     Route: 042
     Dates: start: 20180810, end: 20180810
  12. METOPROLOL. [Concomitant]
     Active Substance: METOPROLOL
     Dosage: UNK
  13. THROMBO ASS [Concomitant]
     Active Substance: ASPIRIN
     Dosage: UNK
     Dates: start: 20181012, end: 20181115
  14. PACLITAXEL. [Suspect]
     Active Substance: PACLITAXEL
     Dosage: 279.32 MG, WEEKLY (EVERY WEEK)
     Route: 042
     Dates: start: 20180921, end: 20180921
  15. ULSAL [Concomitant]
     Active Substance: RANITIDINE HYDROCHLORIDE
     Dosage: UNK
     Dates: start: 20180810, end: 20181019

REACTIONS (6)
  - Lymphoedema [Recovered/Resolved]
  - Epistaxis [Recovered/Resolved]
  - Anaemia [Recovered/Resolved]
  - Oedema peripheral [Recovered/Resolved]
  - Nausea [Recovered/Resolved]
  - Fatigue [Recovered/Resolved]

NARRATIVE: CASE EVENT DATE: 20180928
